FAERS Safety Report 9537180 (Version 2)
Quarter: 2013Q4

REPORT INFORMATION
  Report Type: Report from Study
  Country: US (occurrence: US)
  Receive Date: 20130919
  Receipt Date: 20131004
  Transmission Date: 20140711
  Serious: Yes (Other)
  Sender: FDA-Public Use
  Company Number: US-BAYER-2013-112947

PATIENT
  Age: 72 Year
  Sex: Male

DRUGS (1)
  1. SORAFENIB [Suspect]
     Indication: HEPATIC CANCER
     Dosage: 400MG, DAILY
     Route: 048
     Dates: start: 20130823, end: 20130909

REACTIONS (2)
  - Liver injury [None]
  - Hepatic cancer [None]
